FAERS Safety Report 8803118 (Version 2)
Quarter: 2015Q1

REPORT INFORMATION
  Report Type: Report from Study
  Country: US (occurrence: US)
  Receive Date: 20120924
  Receipt Date: 20150305
  Transmission Date: 20150721
  Serious: Yes (Death)
  Sender: FDA-Public Use
  Company Number: US-ROCHE-1103417

PATIENT
  Sex: Female

DRUGS (25)
  1. PROCHLORPERAZINE MALEATE. [Concomitant]
     Active Substance: PROCHLORPERAZINE MALEATE
     Dosage: AS DIRECTED
     Route: 048
     Dates: start: 20071016
  2. CYCLOPHOSPHAMIDE. [Concomitant]
     Active Substance: CYCLOPHOSPHAMIDE
     Route: 042
     Dates: start: 20070821, end: 20071002
  3. ALOXI [Concomitant]
     Active Substance: PALONOSETRON HYDROCHLORIDE
     Dosage: AND SHE RECEIVED 250 MG OF ALOXI ON FOLLOWING DATES-18/MAR/2008, 01/APR/2008, 08/APR/2008, 22/APR/20
     Route: 042
     Dates: start: 20070821, end: 20080626
  4. ATIVAN [Concomitant]
     Active Substance: LORAZEPAM
     Route: 065
     Dates: start: 20070904
  5. NEULASTA [Concomitant]
     Active Substance: PEGFILGRASTIM
     Dosage: AND SHE RECEIVED NEULASTA ON 09/APR/2008 AND ON 30/APR/2008
     Route: 058
     Dates: start: 20070822, end: 20080625
  6. ONDANSETRON HCL [Concomitant]
     Active Substance: ONDANSETRON HYDROCHLORIDE
     Route: 048
     Dates: start: 20070821
  7. LEVAQUIN [Concomitant]
     Active Substance: LEVOFLOXACIN
  8. XELODA [Suspect]
     Active Substance: CAPECITABINE
     Indication: PRODUCT USED FOR UNKNOWN INDICATION
     Dosage: LAST DOSE WAS GIVEN ON 08/JUL/2008
     Route: 048
     Dates: start: 20080514
  9. NEUPOGEN [Concomitant]
     Active Substance: FILGRASTIM
     Route: 058
     Dates: start: 20080603, end: 20080603
  10. GEMCITABINE HCL [Concomitant]
     Active Substance: GEMCITABINE HYDROCHLORIDE
     Dosage: AND SHE RECEIVED GEMCITABINE ON 11/APR/2008, 08/APR/2008, 22/APR/2008
     Route: 042
     Dates: start: 20080318, end: 20080429
  11. HEPARIN LOCK FLUSH [Concomitant]
     Active Substance: HEPARIN SODIUM
     Dosage: AND SHE RECEIVED HEPARIN LOCK FLUSH ON 22/APR/2008 AND ON 14/MAY/2008
     Route: 065
     Dates: start: 20070905, end: 20080626
  12. IBUPROFEN. [Concomitant]
     Active Substance: IBUPROFEN
     Dosage: AS DIRECTED
     Route: 048
  13. DEXAMETHASONE. [Concomitant]
     Active Substance: DEXAMETHASONE
     Route: 042
     Dates: start: 20071016, end: 20080624
  14. VANCOMYCIN [Concomitant]
     Active Substance: VANCOMYCIN
  15. IXEMPRA [Concomitant]
     Active Substance: IXABEPILONE
     Route: 042
     Dates: start: 20080514, end: 20080624
  16. AVASTIN [Suspect]
     Active Substance: BEVACIZUMAB
     Indication: BREAST CANCER FEMALE
     Dosage: AND HE RECEIVED BEVACIZUMAB ON 08/APR/2008
     Route: 042
     Dates: start: 20080318, end: 20080429
  17. RANITIDINE [Concomitant]
     Active Substance: RANITIDINE\RANITIDINE HYDROCHLORIDE
     Dosage: AND SHE RECEIVED RANITIDINE ON 14/MAY/2008
     Route: 042
     Dates: start: 20071016, end: 20080624
  18. POTASSIUM CHLORIDE. [Concomitant]
     Active Substance: POTASSIUM CHLORIDE
     Route: 048
     Dates: start: 20080707
  19. LORAZEPAM. [Concomitant]
     Active Substance: LORAZEPAM
     Dosage: AS DIRECTED
     Route: 048
     Dates: start: 20070822, end: 20070822
  20. DEXAMETHASONE. [Concomitant]
     Active Substance: DEXAMETHASONE
     Route: 065
     Dates: start: 20080422
  21. DOXORUBICIN HCL [Concomitant]
     Active Substance: DOXORUBICIN HYDROCHLORIDE
     Route: 042
     Dates: start: 20070821, end: 20071002
  22. DEXAMETHASONE. [Concomitant]
     Active Substance: DEXAMETHASONE
     Dosage: 29/APR/2008, 14/MAY/2008
     Route: 048
     Dates: start: 20070821, end: 20080626
  23. ZANTAC [Concomitant]
     Active Substance: RANITIDINE HYDROCHLORIDE
     Route: 048
     Dates: start: 20070918
  24. SODIUM CHLORIDE. [Concomitant]
     Active Substance: SODIUM CHLORIDE
     Dosage: AND SHE RECEIVED SODIUM CHLORIDE ON FOLLOWING DATES-18/MAR/2008, 01/APR/2008, 08/APR/2008, 22/APR/20
     Route: 042
     Dates: start: 20070821, end: 20080626
  25. DIPHENHYDRAMINE [Concomitant]
     Active Substance: DIPHENHYDRAMINE
     Route: 065
     Dates: start: 20080514

REACTIONS (18)
  - Erythema [Unknown]
  - Hyponatraemia [Unknown]
  - Weight decreased [Unknown]
  - Abdominal pain upper [Unknown]
  - Hypokalaemia [Unknown]
  - Death [Fatal]
  - Fatigue [Unknown]
  - Constipation [Unknown]
  - Neutropenia [Unknown]
  - Muscular weakness [Unknown]
  - Dysphagia [Unknown]
  - Nausea [Unknown]
  - Asthenia [Unknown]
  - Diarrhoea [Unknown]
  - Metastases to liver [Unknown]
  - Vomiting [Unknown]
  - Dehydration [Unknown]
  - Pyrexia [Unknown]
